FAERS Safety Report 7345176-1 (Version None)
Quarter: 2011Q1

REPORT INFORMATION
  Report Type: 
  Country: None (occurrence: None)
  Receive Date: 20110310
  Receipt Date: 20110307
  Transmission Date: 20110831
  Serious: Yes (Other)
  Sender: FDA-Public Use
  Company Number: GB-AMGEN-GBRSP2011006267

PATIENT
  Sex: Male
  Weight: 75 kg

DRUGS (2)
  1. NPLATE [Suspect]
     Dosage: 150 A?G, UNK
  2. NPLATE [Suspect]
     Indication: IDIOPATHIC THROMBOCYTOPENIC PURPURA
     Dosage: 75 A?G, UNK
     Dates: start: 20101231

REACTIONS (1)
  - INCORRECT DOSE ADMINISTERED [None]
